FAERS Safety Report 6394222-0 (Version None)
Quarter: 2009Q4

REPORT INFORMATION
  Report Type: 
  Country: None (occurrence: None)
  Receive Date: 20091008
  Receipt Date: 20090929
  Transmission Date: 20100525
  Serious: Yes (Other)
  Sender: FDA-Public Use
  Company Number: US-B.I. PHARMACEUTICALS,INC./RIDGEFIELD-2009-BP-11431BP

PATIENT
  Sex: Female
  Weight: 96.2 kg

DRUGS (43)
  1. RANITIDINE HCL [Suspect]
     Indication: GASTROOESOPHAGEAL REFLUX DISEASE
     Dates: end: 20090821
  2. CHANTIX [Suspect]
     Indication: EX-TOBACCO USER
     Dosage: 2 MG
     Route: 048
     Dates: start: 20090220
  3. CHANTIX [Suspect]
     Dates: start: 20090213
  4. MORPHINE SULFATE INJ [Suspect]
     Indication: PAIN
     Dosage: 60 MG
     Dates: end: 20090821
  5. DILAUDID [Suspect]
     Dosage: 4 MG
     Dates: end: 20090821
  6. COMPAZINE [Suspect]
     Indication: NAUSEA
     Dosage: 30 MG
     Dates: end: 20090821
  7. COMPAZINE [Suspect]
     Indication: FAECES HARD
  8. DEPAKOTE ER [Suspect]
  9. FIORICET [Concomitant]
     Indication: MIGRAINE
  10. FIORICET [Concomitant]
  11. PROTONIX [Concomitant]
     Indication: GASTROOESOPHAGEAL REFLUX DISEASE
     Dosage: 40 MG
  12. PROTONIX [Concomitant]
  13. LASIX [Concomitant]
  14. BETHANECHOL [Concomitant]
     Indication: URINARY RETENTION
     Dosage: 100 MG
  15. PERCOCET [Concomitant]
  16. TRICOR [Concomitant]
     Dosage: 145 MG
  17. TRICOR [Concomitant]
  18. ZOFRAN [Concomitant]
     Indication: NAUSEA
     Dosage: 24 MG
  19. REGLAN [Concomitant]
     Indication: NAUSEA
  20. REGLAN [Concomitant]
     Indication: GASTROOESOPHAGEAL REFLUX DISEASE
  21. TOPAMAX [Concomitant]
     Dosage: 200 MG
  22. ZOCOR [Concomitant]
     Dosage: 20 MG
  23. SYNTHROID [Concomitant]
     Indication: THYROID DISORDER
     Dosage: 25 MCG
  24. SYNTHROID [Concomitant]
     Indication: HYPOTHYROIDISM
  25. ZOLOFT [Concomitant]
     Indication: DEPRESSION
     Dosage: 200 MG
     Route: 048
  26. HUMALOG [Concomitant]
     Indication: DIABETES MELLITUS
  27. LANTUS [Concomitant]
     Indication: DIABETES MELLITUS
  28. KLONOPIN [Concomitant]
     Indication: BIPOLAR DISORDER
  29. CLARITIN [Concomitant]
     Indication: SINUS DISORDER
  30. CIPROFLOXACIN HYDROCHLORIDE [Concomitant]
  31. NEURONTIN [Concomitant]
     Indication: PAIN
     Dosage: 400 MG
  32. NEURONTIN [Concomitant]
     Indication: NEUROPATHY PERIPHERAL
  33. NEURONTIN [Concomitant]
     Indication: MIGRAINE
  34. VALIUM [Concomitant]
     Indication: ANXIETY
     Route: 048
  35. VALIUM [Concomitant]
     Indication: DEPRESSION
  36. ZYPREXA [Concomitant]
  37. INSULIN [Concomitant]
  38. LOMOTIL [Concomitant]
     Indication: DIARRHOEA
  39. ENALAPRIL MALEATE [Concomitant]
     Indication: HYPERTENSION
     Dosage: 5 MG
  40. ENALAPRIL MALEATE [Concomitant]
  41. CODEINE [Concomitant]
     Indication: MIGRAINE
  42. NORCO [Concomitant]
  43. ATROPINE [Concomitant]
     Indication: DIARRHOEA

REACTIONS (7)
  - ACCIDENT [None]
  - BLOOD GLUCOSE DECREASED [None]
  - CHEST PAIN [None]
  - DIABETES MELLITUS INADEQUATE CONTROL [None]
  - FOOT FRACTURE [None]
  - GASTROOESOPHAGEAL REFLUX DISEASE [None]
  - URINARY TRACT INFECTION [None]
